FAERS Safety Report 10152993 (Version 3)
Quarter: 2014Q2

REPORT INFORMATION
  Report Type: Spontaneous
  Country: US (occurrence: US)
  Receive Date: 20140505
  Receipt Date: 20140519
  Transmission Date: 20141212
  Serious: No
  Sender: FDA-Public Use
  Company Number: US-BAYER-2014-063977

PATIENT
  Age: 37 Year
  Sex: Female

DRUGS (7)
  1. MAGNEVIST [Suspect]
     Indication: NUCLEAR MAGNETIC RESONANCE IMAGING BRAIN
     Dosage: UNK, YEARS AGO
  2. MAGNEVIST [Suspect]
     Indication: NUCLEAR MAGNETIC RESONANCE IMAGING SPINAL
     Dosage: 15 ML, ONCE
     Route: 042
     Dates: start: 20140404
  3. MAGNEVIST [Suspect]
     Indication: MULTIPLE SCLEROSIS
  4. PREDNISONE [Concomitant]
     Indication: PREMEDICATION
     Dosage: 50 MG, ONCE 13 HOURS BEFORE PROCEDURE
     Route: 048
     Dates: start: 20140404, end: 20140404
  5. PREDNISONE [Concomitant]
     Indication: PREMEDICATION
     Dosage: 50 MG, ONCE 7 HOURS BEFORE PROCEDURE
     Route: 048
     Dates: start: 20140404, end: 20140404
  6. PREDNISONE [Concomitant]
     Indication: PREMEDICATION
     Dosage: 50 MG, ONCE 1 HOUR BEFORE PROCEDURE
     Route: 048
     Dates: start: 20140404, end: 20140404
  7. BENADRYL [Concomitant]
     Indication: PREMEDICATION
     Dosage: 50 MG, ONCE 1 HOUR BEFORE PROCEDURE
     Route: 048
     Dates: start: 20140404, end: 20140404

REACTIONS (2)
  - Urticaria [Recovered/Resolved]
  - Contrast media allergy [None]
